FAERS Safety Report 21218985 (Version 1)
Quarter: 2022Q3

REPORT INFORMATION
  Report Type: Spontaneous
  Country: US (occurrence: US)
  Receive Date: 20220816
  Receipt Date: 20220816
  Transmission Date: 20221026
  Serious: Yes (Other)
  Sender: FDA-Public Use
  Company Number: US-MALLINCKRODT-T202204341

PATIENT
  Age: 4 Month
  Sex: Male

DRUGS (6)
  1. INOMAX [Suspect]
     Active Substance: NITRIC OXIDE
     Indication: Pulmonary arterial hypertension
     Dosage: UNK (INHALATION)
     Route: 055
  2. SILDENAFIL [Concomitant]
     Active Substance: SILDENAFIL
     Indication: Right ventricular systolic pressure increased
     Dosage: UNK
     Route: 065
  3. SILDENAFIL [Concomitant]
     Active Substance: SILDENAFIL
     Indication: Right ventricular dysfunction
  4. BOSENTAN [Concomitant]
     Active Substance: BOSENTAN
     Indication: Pulmonary arterial hypertension
     Dosage: UNK
     Route: 065
  5. REMODULIN [Concomitant]
     Active Substance: TREPROSTINIL
     Indication: Pulmonary arterial hypertension
     Dosage: UNK
     Route: 042
  6. REMODULIN [Concomitant]
     Active Substance: TREPROSTINIL
     Dosage: UNK (UP TITRATION)
     Route: 042

REACTIONS (4)
  - Pulmonary hypertension [Recovering/Resolving]
  - Hypoxia [Unknown]
  - Tachypnoea [Unknown]
  - Product use issue [Unknown]
